FAERS Safety Report 4973033-4 (Version None)
Quarter: 2006Q2

REPORT INFORMATION
  Report Type: 
  Country: None (occurrence: None)
  Receive Date: 20060410
  Receipt Date: 20060327
  Transmission Date: 20061013
  Serious: Yes (Other)
  Sender: FDA-Public Use
  Company Number: 2006US-01874

PATIENT
  Age: 70 Year
  Sex: Female

DRUGS (10)
  1. CIPROFLOXACIN [Suspect]
     Dosage: SEE IMAGE
     Route: 048
     Dates: start: 20060314, end: 20060319
  2. CIPROFLOXACIN [Suspect]
     Dosage: SEE IMAGE
     Route: 048
     Dates: start: 20060314, end: 20060319
  3. LOPRESSOR [Concomitant]
  4. SYNTHROID [Concomitant]
  5. NEXIUM [Concomitant]
  6. HUMULIN [Concomitant]
  7. ASPIRIN [Concomitant]
  8. CENTRUM SILVER [Concomitant]
  9. NATURE MADE IRON TABLETS [Concomitant]
  10. LASIX [Concomitant]

REACTIONS (6)
  - DRUG HYPERSENSITIVITY [None]
  - OEDEMA PERIPHERAL [None]
  - PATHOGEN RESISTANCE [None]
  - PYREXIA [None]
  - SKIN DISCOLOURATION [None]
  - WOUND SECRETION [None]
